FAERS Safety Report 6911837-9 (Version None)
Quarter: 2010Q3

REPORT INFORMATION
  Report Type: 
  Country: None (occurrence: None)
  Receive Date: 20100806
  Receipt Date: 20070409
  Transmission Date: 20110219
  Serious: No
  Sender: FDA-Public Use
  Company Number: US-PFIZER INC-2007029246

PATIENT
  Age: 83 Year
  Sex: Female
  Weight: 54.43 kg

DRUGS (3)
  1. DETROL LA [Suspect]
     Indication: POLLAKIURIA
  2. HYDROCHLOROTHIAZIDE [Concomitant]
  3. TENORMIN [Concomitant]
     Indication: CARDIAC DISORDER

REACTIONS (1)
  - BLOOD UREA INCREASED [None]
